FAERS Safety Report 7528471-2 (Version None)
Quarter: 2011Q2

REPORT INFORMATION
  Report Type: 
  Country: None (occurrence: None)
  Receive Date: 20110607
  Receipt Date: 20101203
  Transmission Date: 20111010
  Serious: No
  Sender: FDA-Public Use
  Company Number: US-ASTRAZENECA-2011SE01006

PATIENT
  Sex: Male

DRUGS (3)
  1. SEIZURE MEDICATION [Concomitant]
     Dosage: UNKNOWN
  2. BLOOD PRESSURE MEDICATION [Concomitant]
     Dosage: UNKNOWN
  3. PRILOSEC OTC [Suspect]
     Route: 048
     Dates: start: 20101112, end: 20101202

REACTIONS (2)
  - DRY MOUTH [None]
  - INCORRECT DRUG ADMINISTRATION DURATION [None]
